FAERS Safety Report 11612143 (Version 1)
Quarter: 2015Q4

REPORT INFORMATION
  Report Type: Spontaneous
  Country: US (occurrence: US)
  Receive Date: 20151008
  Receipt Date: 20151008
  Transmission Date: 20160304
  Serious: No
  Sender: FDA-Public Use
  Company Number: US-GLAXOSMITHKLINE-US2015GSK134738

PATIENT
  Sex: Male

DRUGS (1)
  1. FLOLAN [Suspect]
     Active Substance: EPOPROSTENOL SODIUM
     Indication: PULMONARY ARTERIAL HYPERTENSION
     Dosage: 7.5 NG/KG/MIN (CONCENTRATION OF 15,000 NG/ML, PUMP RATE 42 ML/DAY), CO
     Route: 042
     Dates: start: 20100301

REACTIONS (2)
  - Pain in jaw [Unknown]
  - Burning sensation [Unknown]
